FAERS Safety Report 7030865-9 (Version None)
Quarter: 2010Q4

REPORT INFORMATION
  Report Type: 
  Country: None (occurrence: None)
  Receive Date: 20101006
  Receipt Date: 20100930
  Transmission Date: 20110411
  Serious: Yes (Hospitalization, Disabling, Other)
  Sender: FDA-Public Use
  Company Number: US-MERCK-0706USA00827

PATIENT
  Age: 47 Year
  Sex: Female
  Weight: 67 kg

DRUGS (3)
  1. FOSAMAX [Suspect]
     Indication: OSTEOPOROSIS
     Route: 048
     Dates: start: 20000101, end: 20060101
  2. FOSAMAX [Suspect]
     Route: 048
     Dates: start: 20090912
  3. XANAX [Concomitant]
     Indication: ANXIETY
     Dosage: 2-4 TIMES PER DAY
     Route: 048
     Dates: start: 19990101

REACTIONS (35)
  - ANXIETY [None]
  - ARTHRALGIA [None]
  - BACK PAIN [None]
  - BRONCHITIS [None]
  - BUNDLE BRANCH BLOCK RIGHT [None]
  - CARDIAC DISORDER [None]
  - CHEST PAIN [None]
  - CONJUNCTIVITIS [None]
  - COSTOCHONDRITIS [None]
  - DEPRESSION [None]
  - EAR PAIN [None]
  - EXPOSURE TO ALLERGEN [None]
  - GASTROINTESTINAL DISORDER [None]
  - GLUCOSE TOLERANCE IMPAIRED [None]
  - GRAVITATIONAL OEDEMA [None]
  - HAEMATURIA [None]
  - HERPES SIMPLEX [None]
  - JAW DISORDER [None]
  - LIMB INJURY [None]
  - LOW DENSITY LIPOPROTEIN INCREASED [None]
  - MUSCLE STRAIN [None]
  - NON-CARDIAC CHEST PAIN [None]
  - ORAL PAIN [None]
  - OSTEONECROSIS OF JAW [None]
  - OSTEOPENIA [None]
  - PAIN IN EXTREMITY [None]
  - PHARYNGITIS [None]
  - RADICULAR PAIN [None]
  - SINUSITIS [None]
  - UPPER RESPIRATORY TRACT INFECTION [None]
  - VASCULAR HEADACHE [None]
  - VASOMOTOR RHINITIS [None]
  - VERTIGO [None]
  - VITAMIN B12 DEFICIENCY [None]
  - WEIGHT INCREASED [None]
